FAERS Safety Report 11925808 (Version 1)
Quarter: 2016Q1

REPORT INFORMATION
  Report Type: Other
  Country: US (occurrence: US)
  Receive Date: 20160118
  Receipt Date: 20160118
  Transmission Date: 20160526
  Serious: Yes (Hospitalization, Other)
  Sender: FDA-Public Use
  Company Number: US-ORCHID HEALTHCARE-1046593

PATIENT
  Age: 93 Year
  Sex: Female

DRUGS (1)
  1. OLANZAPINE. [Suspect]
     Active Substance: OLANZAPINE
     Indication: DELIRIUM
     Route: 065

REACTIONS (2)
  - Sinus bradycardia [None]
  - Hypothermia [Recovered/Resolved]
